FAERS Safety Report 4675232-8 (Version None)
Quarter: 2005Q2

REPORT INFORMATION
  Report Type: 
  Country: None (occurrence: None)
  Receive Date: 20050527
  Receipt Date: 20050518
  Transmission Date: 20051028
  Serious: Yes (Other)
  Sender: FDA-Public Use
  Company Number: PHEH2005US05701

PATIENT
  Age: 16 Year
  Sex: Male

DRUGS (1)
  1. CLOZARIL [Suspect]
     Dosage: 300 MG, QD
     Route: 048
     Dates: start: 20040901

REACTIONS (4)
  - EAR INFECTION [None]
  - NEUTROPHIL COUNT ABNORMAL [None]
  - NEUTROPHIL COUNT INCREASED [None]
  - WHITE BLOOD CELL COUNT INCREASED [None]
